FAERS Safety Report 14624789 (Version 2)
Quarter: 2018Q2

REPORT INFORMATION
  Report Type: Spontaneous
  Country: US (occurrence: US)
  Receive Date: 20180312
  Receipt Date: 20180518
  Transmission Date: 20180711
  Serious: No
  Sender: FDA-Public Use
  Company Number: US-PFIZER INC-2018096478

PATIENT
  Sex: Female

DRUGS (3)
  1. ASPIRIN /00002701/ [Suspect]
     Active Substance: ASPIRIN
     Indication: HEADACHE
     Dosage: UNK
  2. ADVIL [Suspect]
     Active Substance: IBUPROFEN
     Indication: MYALGIA
     Dosage: UNK
  3. ALEVE [Suspect]
     Active Substance: NAPROXEN SODIUM
     Indication: INFLAMMATION
     Dosage: UNK

REACTIONS (7)
  - Rhinorrhoea [Unknown]
  - Sneezing [Unknown]
  - Paranasal sinus discomfort [Unknown]
  - Sinus disorder [Unknown]
  - Respiratory disorder [Not Recovered/Not Resolved]
  - Drug hypersensitivity [Not Recovered/Not Resolved]
  - Headache [Unknown]
